FAERS Safety Report 8806463 (Version 2)
Quarter: 2012Q4

REPORT INFORMATION
  Report Type: Report from Study
  Country: KR (occurrence: KR)
  Receive Date: 20120925
  Receipt Date: 20121005
  Transmission Date: 20130627
  Serious: Yes (Death, Life-Threatening, Hospitalization, Other)
  Sender: FDA-Public Use
  Company Number: KR-MILLENNIUM PHARMACEUTICALS, INC.-2012-06470

PATIENT

DRUGS (4)
  1. VELCADE [Suspect]
     Indication: MULTIPLE MYELOMA
     Dosage: 1.3 mg/m2, UNK
     Route: 042
     Dates: start: 20120221, end: 20120817
  2. VELCADE [Suspect]
     Dosage: 1.0 mg/m2, UNK
     Route: 042
     Dates: start: 20120820, end: 20120820
  3. MELPHALAN [Suspect]
     Indication: MULTIPLE MYELOMA
     Dosage: 9 mg/m2, UNK
     Route: 065
     Dates: start: 20120221, end: 20120706
  4. PREDNISOLONE [Suspect]
     Indication: MULTIPLE MYELOMA
     Dosage: 60 mg/m2, UNK
     Route: 065
     Dates: start: 20120221, end: 20120706

REACTIONS (5)
  - Renal failure acute [Recovering/Resolving]
  - Pneumonia [Recovered/Resolved]
  - Pneumothorax [Recovered/Resolved]
  - Hypotension [Recovered/Resolved]
  - Disease progression [Fatal]
